FAERS Safety Report 10142411 (Version 1)
Quarter: 2014Q2

REPORT INFORMATION
  Report Type: Report from Study
  Country: US (occurrence: US)
  Receive Date: 20140430
  Receipt Date: 20140430
  Transmission Date: 20141212
  Serious: Yes (Other)
  Sender: FDA-Public Use
  Company Number: US-ROCHE-1386285

PATIENT
  Sex: Female
  Weight: 83.01 kg

DRUGS (5)
  1. NUTROPIN [Suspect]
     Indication: HYPOPITUITARISM
     Route: 058
  2. HYDROCHLOROTHIAZIDE [Concomitant]
     Dosage: 15/5/2.5
     Route: 065
  3. SYNTHROID [Concomitant]
     Route: 065
  4. NASOCORT [Concomitant]
     Indication: HYPERSENSITIVITY
     Dosage: PRN
     Route: 065
  5. LAMICTAL [Concomitant]
     Route: 065

REACTIONS (2)
  - Convulsion [Unknown]
  - Carpal tunnel syndrome [Unknown]
